FAERS Safety Report 5612334-3 (Version None)
Quarter: 2008Q1

REPORT INFORMATION
  Report Type: 
  Country: None (occurrence: None)
  Receive Date: 20080131
  Receipt Date: 20080131
  Transmission Date: 20080703
  Serious: Yes (Life-Threatening, Hospitalization, Disabling)
  Sender: FDA-Public Use
  Company Number: None

PATIENT
  Age: 50 Year
  Sex: Male

DRUGS (2)
  1. HEPARIN [Suspect]
     Indication: DIALYSIS
     Dates: start: 20070918
  2. HEPARIN [Suspect]
     Indication: DIALYSIS
     Dates: start: 20071009, end: 20080117

REACTIONS (5)
  - DYSKINESIA [None]
  - NAUSEA [None]
  - PHARMACEUTICAL PRODUCT COMPLAINT [None]
  - PHARYNGEAL OEDEMA [None]
  - RHONCHI [None]
